FAERS Safety Report 6419668-3 (Version None)
Quarter: 2009Q4

REPORT INFORMATION
  Report Type: 
  Country: None (occurrence: None)
  Receive Date: 20091029
  Receipt Date: 20091027
  Transmission Date: 20100525
  Serious: Yes (Death, Hospitalization)
  Sender: FDA-Public Use
  Company Number: A0813838A

PATIENT
  Age: 60 Year
  Sex: Male

DRUGS (2)
  1. AVANDIA [Suspect]
     Indication: DIABETES MELLITUS
     Dosage: 4MG PER DAY
     Route: 048
     Dates: start: 20060406, end: 20070922
  2. FUROSEMIDE [Concomitant]

REACTIONS (3)
  - CARDIAC ARREST [None]
  - RESPIRATORY FAILURE [None]
  - WEIGHT INCREASED [None]
